FAERS Safety Report 14003286 (Version 2)
Quarter: 2017Q3

REPORT INFORMATION
  Report Type: Report from Study
  Country: US (occurrence: US)
  Receive Date: 20170922
  Receipt Date: 20170928
  Transmission Date: 20171128
  Serious: Yes (Other)
  Sender: FDA-Public Use
  Company Number: US-GILEAD-2017-0294710

PATIENT
  Age: 39 Year
  Sex: Female
  Weight: 126 kg

DRUGS (6)
  1. AMBRISENTAN [Suspect]
     Active Substance: AMBRISENTAN
     Indication: PULMONARY HYPERTENSION
     Dosage: 10 MG, QD
     Route: 048
  2. AMBRISENTAN [Suspect]
     Active Substance: AMBRISENTAN
     Indication: PULMONARY HYPERTENSION
  3. AMBRISENTAN [Suspect]
     Active Substance: AMBRISENTAN
     Indication: CONNECTIVE TISSUE DISORDER
  4. SILDENAFIL. [Concomitant]
     Active Substance: SILDENAFIL
  5. OXYGEN. [Concomitant]
     Active Substance: OXYGEN
  6. REVATIO [Concomitant]
     Active Substance: SILDENAFIL CITRATE

REACTIONS (4)
  - Dizziness [Unknown]
  - Syncope [Recovered/Resolved]
  - Nausea [Unknown]
  - Discomfort [Unknown]

NARRATIVE: CASE EVENT DATE: 20170920
